FAERS Safety Report 8586753-X (Version None)
Quarter: 2012Q3

REPORT INFORMATION
  Report Type: 
  Country: None (occurrence: None)
  Receive Date: 20120810
  Receipt Date: 20120703
  Transmission Date: 20120928
  Serious: No
  Sender: FDA-Public Use
  Company Number: US-ASTRAZENECA-2012SE26517

PATIENT
  Age: 57 Year
  Sex: Male

DRUGS (2)
  1. SYMBICORT [Suspect]
     Indication: DYSPNOEA PAROXYSMAL NOCTURNAL
     Dosage: 80/4.5 MCG ONE PUFF TWICE A DAY
     Route: 055
  2. NEXIUM [Suspect]
     Indication: GASTROOESOPHAGEAL REFLUX DISEASE
     Route: 048

REACTIONS (5)
  - OFF LABEL USE [None]
  - NASAL CONGESTION [None]
  - DRUG DOSE OMISSION [None]
  - DEVICE MISUSE [None]
  - DRUG PRESCRIBING ERROR [None]
